FAERS Safety Report 10498834 (Version 2)
Quarter: 2014Q4

REPORT INFORMATION
  Report Type: Spontaneous
  Country: JP (occurrence: JP)
  Receive Date: 20141006
  Receipt Date: 20141009
  Transmission Date: 20150528
  Serious: Yes (Other)
  Sender: FDA-Public Use
  Company Number: PHHY2014JP129392

PATIENT
  Age: 62 Year
  Sex: Female

DRUGS (2)
  1. ZOLEDRONATE [Suspect]
     Active Substance: ZOLEDRONIC ACID
     Indication: BREAST CANCER
  2. ZOLEDRONATE [Suspect]
     Active Substance: ZOLEDRONIC ACID
     Indication: METASTASES TO BONE
     Route: 048
     Dates: start: 201110

REACTIONS (4)
  - Osteomyelitis [Recovering/Resolving]
  - Gingival swelling [Recovering/Resolving]
  - Exposed bone in jaw [Not Recovered/Not Resolved]
  - Purulent discharge [Recovering/Resolving]

NARRATIVE: CASE EVENT DATE: 201311
